FAERS Safety Report 7049775-6 (Version None)
Quarter: 2010Q4

REPORT INFORMATION
  Report Type: 
  Country: None (occurrence: None)
  Receive Date: 20101018
  Receipt Date: 20101005
  Transmission Date: 20110411
  Serious: Yes (Other)
  Sender: FDA-Public Use
  Company Number: US-ELI_LILLY_AND_COMPANY-US201009002099

PATIENT
  Sex: Female
  Weight: 77.098 kg

DRUGS (6)
  1. EFFIENT [Suspect]
     Indication: STENT PLACEMENT
     Dosage: 10 MG, UNKNOWN
     Dates: start: 20100614, end: 20100830
  2. CRESTOR /01588602/ [Concomitant]
     Dosage: 20 MG, OTHER
  3. TOPROL-XL [Concomitant]
     Dosage: 50 MG, DAILY (1/D)
  4. NEXIUM [Concomitant]
     Dosage: 40 MG, DAILY (1/D)
  5. ENALAPRIL MALEATE [Concomitant]
     Dosage: 2.5 MG, DAILY (1/D)
  6. ASPIRIN [Concomitant]
     Dosage: 81 MG, DAILY (1/D)

REACTIONS (3)
  - BONE MARROW FAILURE [None]
  - GENERAL PHYSICAL HEALTH DETERIORATION [None]
  - PANCYTOPENIA [None]
